FAERS Safety Report 7236814-2 (Version None)
Quarter: 2011Q1

REPORT INFORMATION
  Report Type: 
  Country: None (occurrence: None)
  Receive Date: 20110120
  Receipt Date: 20110110
  Transmission Date: 20110831
  Serious: No
  Sender: FDA-Public Use
  Company Number: US-B.I. PHARMACEUTICALS,INC./RIDGEFIELD-2011-BP-01084BP

PATIENT
  Sex: Female

DRUGS (4)
  1. LASIX [Concomitant]
     Indication: FLUID IMBALANCE
  2. PRADAXA [Suspect]
     Indication: ATRIAL FIBRILLATION
     Dosage: 300 MG
     Route: 048
     Dates: start: 20110101
  3. POTASSIUM [Concomitant]
     Indication: PROPHYLAXIS
  4. UNKNOWN MEDICATION [Concomitant]
     Indication: HYPERTENSION

REACTIONS (3)
  - IMPAIRED HEALING [None]
  - NAUSEA [None]
  - DRUG HYPERSENSITIVITY [None]
